FAERS Safety Report 7207045-7 (Version None)
Quarter: 2011Q1

REPORT INFORMATION
  Report Type: 
  Country: None (occurrence: None)
  Receive Date: 20110103
  Receipt Date: 20101224
  Transmission Date: 20110831
  Serious: Yes (Hospitalization, Other)
  Sender: FDA-Public Use
  Company Number: B0689586A

PATIENT
  Age: 16 Year
  Sex: Female

DRUGS (1)
  1. PROPAFENONE HCL [Suspect]
     Dosage: 6000MG PER DAY
     Route: 048

REACTIONS (15)
  - CARDIAC FAILURE [None]
  - CONDUCTION DISORDER [None]
  - TOXICITY TO VARIOUS AGENTS [None]
  - HYPOTENSION [None]
  - RESPIRATORY DISTRESS [None]
  - OXYGEN SATURATION DECREASED [None]
  - MYOCARDIAL DEPRESSION [None]
  - HAEMODYNAMIC INSTABILITY [None]
  - VENTRICULAR TACHYCARDIA [None]
  - PULSE PRESSURE DECREASED [None]
  - SUICIDE ATTEMPT [None]
  - HEART RATE DECREASED [None]
  - GRAND MAL CONVULSION [None]
  - VENTRICULAR ARRHYTHMIA [None]
  - OVERDOSE [None]
